FAERS Safety Report 7984474-5 (Version None)
Quarter: 2011Q4

REPORT INFORMATION
  Report Type: 
  Country: None (occurrence: None)
  Receive Date: 20111216
  Receipt Date: 20111207
  Transmission Date: 20120403
  Serious: Yes (Other)
  Sender: FDA-Public Use
  Company Number: US-BAYER-2011-112507

PATIENT
  Age: 51 Year
  Sex: Female

DRUGS (3)
  1. CLIMARA PRO [Suspect]
     Indication: OSTEOPENIA
     Dosage: UNK
     Route: 062
     Dates: start: 20110401, end: 20110401
  2. CLIMARA PRO [Suspect]
     Indication: MENOPAUSE
  3. CLIMARA PRO [Suspect]
     Indication: HEADACHE

REACTIONS (2)
  - MUSCLE SPASMS [None]
  - PARAESTHESIA [None]
